FAERS Safety Report 15285989 (Version 3)
Quarter: 2018Q3

REPORT INFORMATION
  Report Type: Spontaneous
  Country: US (occurrence: US)
  Receive Date: 20180816
  Receipt Date: 20180928
  Transmission Date: 20181010
  Serious: Yes (Death)
  Sender: FDA-Public Use
  Company Number: US-CELGENEUS-USA-20180804460

PATIENT
  Age: 64 Year
  Sex: Male

DRUGS (3)
  1. REVLIMID [Suspect]
     Active Substance: LENALIDOMIDE
     Indication: PLASMA CELL MYELOMA
     Dosage: 25 MILLIGRAM
     Route: 048
     Dates: start: 20170301
  2. REVLIMID [Suspect]
     Active Substance: LENALIDOMIDE
     Dosage: 10?15MG
     Route: 048
     Dates: start: 201710
  3. REVLIMID [Suspect]
     Active Substance: LENALIDOMIDE
     Dosage: 20 MILLIGRAM
     Route: 048
     Dates: start: 201805

REACTIONS (2)
  - Pneumonia [Fatal]
  - Sepsis [Fatal]

NARRATIVE: CASE EVENT DATE: 20180805
